FAERS Safety Report 10226686 (Version 1)
Quarter: 2014Q2

REPORT INFORMATION
  Report Type: Spontaneous
  Country: IT (occurrence: IT)
  Receive Date: 20140609
  Receipt Date: 20140609
  Transmission Date: 20141212
  Serious: Yes (Other)
  Sender: FDA-Public Use
  Company Number: IT-BRISTOL-MYERS SQUIBB COMPANY-20748802

PATIENT
  Age: 78 Year
  Sex: Male

DRUGS (1)
  1. COUMADIN TABS 5 MG [Suspect]
     Indication: ATRIAL FIBRILLATION
     Dosage: LAST DOSE ON 03APR14
     Route: 048
     Dates: start: 20140101

REACTIONS (4)
  - Thrombophlebitis superficial [Recovering/Resolving]
  - Thrombosis [Recovering/Resolving]
  - Asthenia [Recovering/Resolving]
  - Intentional product misuse [Unknown]
